FAERS Safety Report 8063881-9 (Version None)
Quarter: 2012Q1

REPORT INFORMATION
  Report Type: 
  Country: None (occurrence: None)
  Receive Date: 20120123
  Receipt Date: 20120119
  Transmission Date: 20120608
  Serious: Yes (Other)
  Sender: FDA-Public Use
  Company Number: US-PFIZER INC-2012016198

PATIENT
  Sex: Female

DRUGS (1)
  1. DILANTIN-125 [Suspect]
     Dosage: UNK

REACTIONS (5)
  - MIGRAINE [None]
  - PERIPHERAL NERVE INJURY [None]
  - SKULL FRACTURE [None]
  - INJURY [None]
  - SURGERY [None]
